FAERS Safety Report 10210513 (Version 1)
Quarter: 2014Q2

REPORT INFORMATION
  Report Type: Spontaneous
  Country: US (occurrence: US)
  Receive Date: 20140602
  Receipt Date: 20140602
  Transmission Date: 20141212
  Serious: No
  Sender: FDA-Public Use
  Company Number: US-PFIZER INC-2014150575

PATIENT
  Age: 32 Year
  Sex: Female

DRUGS (3)
  1. LYRICA [Suspect]
     Indication: NEUROPATHY PERIPHERAL
     Dosage: 50 MG, DAILY
     Dates: start: 20140528, end: 20140529
  2. BACLOFEN [Concomitant]
     Dosage: UNK
  3. FLONASE [Concomitant]
     Dosage: UNK

REACTIONS (2)
  - Gingival bleeding [Recovered/Resolved]
  - Menstruation irregular [Recovered/Resolved]
